FAERS Safety Report 5877954-X (Version None)
Quarter: 2008Q3

REPORT INFORMATION
  Report Type: 
  Country: None (occurrence: None)
  Receive Date: 20080911
  Receipt Date: 20080905
  Transmission Date: 20090109
  Serious: Yes (Other)
  Sender: FDA-Public Use
  Company Number: B0536590A

PATIENT
  Age: 22 Year
  Sex: Male

DRUGS (1)
  1. LAMIVUDINE [Suspect]
     Route: 048
     Dates: start: 20040304

REACTIONS (4)
  - DISEASE PROGRESSION [None]
  - DRUG INEFFECTIVE [None]
  - HEPATITIS B [None]
  - LIVER FUNCTION TEST ABNORMAL [None]
